FAERS Safety Report 5005913-8 (Version None)
Quarter: 2006Q2

REPORT INFORMATION
  Report Type: 
  Country: None (occurrence: None)
  Receive Date: 20060517
  Receipt Date: 20060517
  Transmission Date: 20061013
  Serious: Yes (Other)
  Sender: FDA-Public Use
  Company Number: None

PATIENT
  Sex: Male
  Weight: 86.637 kg

DRUGS (1)
  1. PROLIXIN [Suspect]
     Indication: SCHIZOPHRENIA, PARANOID TYPE
     Dosage: 100MG Q 6H
     Dates: start: 19790101, end: 20040101

REACTIONS (2)
  - CORONARY ARTERY DISEASE [None]
  - DRUG HYPERSENSITIVITY [None]
